FAERS Safety Report 24825994 (Version 1)
Quarter: 2025Q1

REPORT INFORMATION
  Report Type: Spontaneous
  Country: US (occurrence: US)
  Receive Date: 20250109
  Receipt Date: 20250109
  Transmission Date: 20250409
  Serious: No
  Sender: PADAGIS
  Company Number: US-PADAGIS-2024PAD02000

PATIENT

DRUGS (9)
  1. MUPIROCIN [Suspect]
     Active Substance: MUPIROCIN
     Indication: Papule
     Route: 061
  2. MUPIROCIN [Suspect]
     Active Substance: MUPIROCIN
     Indication: Rash erythematous
     Route: 061
  3. CLINDAMYCIN PHOSPHATE [Suspect]
     Active Substance: CLINDAMYCIN PHOSPHATE
     Indication: Papule
     Route: 061
  4. CLINDAMYCIN PHOSPHATE [Suspect]
     Active Substance: CLINDAMYCIN PHOSPHATE
     Indication: Rash erythematous
  5. TACROLIMUS [Suspect]
     Active Substance: TACROLIMUS
     Indication: Rash erythematous
     Route: 065
  6. BELATACEPT [Concomitant]
     Active Substance: BELATACEPT
     Indication: Immunosuppression
     Dosage: UNK, MONTHLY INFUSIONS
     Route: 065
  7. MYCOPHENOLIC ACID [Concomitant]
     Active Substance: MYCOPHENOLIC ACID
     Indication: Immunosuppression
     Route: 065
  8. PREDNISONE [Concomitant]
     Active Substance: PREDNISONE
     Indication: Immunosuppression
     Route: 065
  9. RAVULIZUMAB [Concomitant]
     Active Substance: RAVULIZUMAB
     Indication: Microangiopathic haemolytic anaemia
     Route: 065

REACTIONS (2)
  - Condition aggravated [Recovering/Resolving]
  - Drug ineffective for unapproved indication [Unknown]
